FAERS Safety Report 18659211 (Version 3)
Quarter: 2022Q1

REPORT INFORMATION
  Report Type: Spontaneous
  Country: US (occurrence: US)
  Receive Date: 20201223
  Receipt Date: 20220104
  Transmission Date: 20220423
  Serious: Yes (Other)
  Sender: FDA-Public Use
  Company Number: US-COOPERSURGICAL, INC.-US-2020CPS002447

PATIENT
  Age: 39 Year
  Sex: Female
  Weight: 88.889 kg

DRUGS (1)
  1. PARAGARD T 380A [Suspect]
     Active Substance: COPPER
     Indication: Contraception
     Dosage: UNK
     Route: 015
     Dates: start: 20100824

REACTIONS (7)
  - Foreign body in reproductive tract [Recovered/Resolved]
  - Urinary tract infection [Recovered/Resolved]
  - Coital bleeding [Unknown]
  - Device material issue [Recovered/Resolved]
  - Device use issue [Recovered/Resolved]
  - Pelvic pain [Recovered/Resolved]
  - Back pain [Recovered/Resolved]

NARRATIVE: CASE EVENT DATE: 20200125
